FAERS Safety Report 8844459 (Version 1)
Quarter: 2012Q4

REPORT INFORMATION
  Report Type: Spontaneous
  Country: SE (occurrence: None)
  Receive Date: 20121012
  Receipt Date: 20121012
  Transmission Date: 20130627
  Serious: Yes (Hospitalization)
  Sender: FDA-Public Use
  Company Number: SE-009766

PATIENT
  Age: 78 Year
  Sex: Female

DRUGS (6)
  1. MINIRIN [Suspect]
     Indication: URINARY INCONTINENCE
  2. PANODIL [Concomitant]
  3. BEHEPAN [Concomitant]
  4. COCILLANA-ETYFIN [Concomitant]
  5. TROMBYL [Concomitant]
  6. ARTHROTEC [Concomitant]

REACTIONS (3)
  - Hyponatraemia [None]
  - Transient ischaemic attack [None]
  - Drug interaction [None]
